FAERS Safety Report 16084188 (Version 1)
Quarter: 2019Q1

REPORT INFORMATION
  Report Type: Spontaneous
  Country: US (occurrence: US)
  Receive Date: 20190214
  Receipt Date: 20190214
  Transmission Date: 20190418
  Serious: Yes (Death)
  Sender: FDA-Public Use
  Company Number: None

PATIENT
  Age: 88 Year
  Sex: Male

DRUGS (1)
  1. ABIRATERONE ACETATE. [Suspect]
     Active Substance: ABIRATERONE ACETATE
     Dosage: ?          OTHER FREQUENCY:D BEFORE LUNCH;?
     Route: 048
     Dates: start: 20180108

REACTIONS (1)
  - Death [None]

NARRATIVE: CASE EVENT DATE: 2019
